FAERS Safety Report 15600713 (Version 1)
Quarter: 2018Q4

REPORT INFORMATION
  Report Type: Spontaneous
  Country: US (occurrence: US)
  Receive Date: 20181109
  Receipt Date: 20181109
  Transmission Date: 20190205
  Serious: No
  Sender: FDA-Public Use
  Company Number: US-BIOGEN-2018BI00652747

PATIENT
  Sex: Female

DRUGS (1)
  1. AVONEX [Suspect]
     Active Substance: INTERFERON BETA-1A
     Indication: MULTIPLE SCLEROSIS
     Dosage: INJECT 30 MCG?INTRAMUSCULARLY?ONCE WEEKLY
     Route: 030
     Dates: start: 20010323

REACTIONS (4)
  - Device defective [Unknown]
  - Mobility decreased [Unknown]
  - Asthenia [Unknown]
  - Product dose omission [Unknown]
